FAERS Safety Report 7425070 (Version 6)
Quarter: 2014Q2

REPORT INFORMATION
  Report Type: Report from Study
  Country: IT (occurrence: IT)
  Receive Date: 20100618
  Receipt Date: 20140412
  Transmission Date: 20141212
  Serious: Yes (Life-Threatening, Hospitalization, Other)
  Sender: FDA-Public Use
  Company Number: PHHO2010IT09126

PATIENT
  Sex: 0

DRUGS (6)
  1. ALISKIREN [Suspect]
     Indication: CORONARY ARTERY DISEASE
     Dosage: 150 MG, UNK
     Route: 048
     Dates: start: 20100604, end: 20100607
  2. NO TREATMENT RECEIVED [Suspect]
     Indication: CORONARY ARTERY DISEASE
     Dosage: NO TREATMENT
  3. CONTRAST MEDIA [Suspect]
  4. ACE INHIBITOR NOS [Suspect]
  5. METFORMIN [Suspect]
     Indication: DIABETES MELLITUS
     Dosage: UNK
     Dates: start: 2005
  6. OMEPRAZID [Concomitant]
     Indication: HYPERTENSION
     Dosage: UNK
     Dates: start: 2008

REACTIONS (5)
  - Renal failure acute [Recovered/Resolved]
  - Lactic acidosis [Recovered/Resolved]
  - Dehydration [Recovered/Resolved]
  - Diarrhoea [Recovered/Resolved]
  - Rash [Not Recovered/Not Resolved]
